FAERS Safety Report 7199508-8 (Version None)
Quarter: 2010Q4

REPORT INFORMATION
  Report Type: 
  Country: None (occurrence: None)
  Receive Date: 20101228
  Receipt Date: 20101215
  Transmission Date: 20110411
  Serious: Yes (Hospitalization)
  Sender: FDA-Public Use
  Company Number: PHHY2010DE87283

PATIENT
  Age: 60 Year
  Sex: Male

DRUGS (10)
  1. ZOMETA [Suspect]
     Route: 042
  2. HYDROCHLOROTHIAZIDE [Concomitant]
  3. JANUVIA [Concomitant]
  4. IRBESARTAN [Concomitant]
  5. NORVASC [Concomitant]
  6. TOREM [Concomitant]
  7. BELOC ZOK [Concomitant]
  8. PANTOZOL [Concomitant]
  9. REDUCTO [Concomitant]
  10. RASILEZ [Concomitant]

REACTIONS (2)
  - OSTEONECROSIS OF JAW [None]
  - TOOTH EXTRACTION [None]
